FAERS Safety Report 26040238 (Version 1)
Quarter: 2025Q4

REPORT INFORMATION
  Report Type: Spontaneous
  Country: EU (occurrence: EU)
  Receive Date: 20251113
  Receipt Date: 20251113
  Transmission Date: 20260118
  Serious: Yes (Death)
  Sender: RANBAXY
  Company Number: EU-SUN PHARMACEUTICAL INDUSTRIES INC-2025RR-535626

PATIENT
  Age: 24 Year
  Sex: Female

DRUGS (16)
  1. TEMOZOLOMIDE [Suspect]
     Active Substance: TEMOZOLOMIDE
     Indication: Extraskeletal myxoid chondrosarcoma
     Dosage: UNK
     Route: 065
  2. IRINOTECAN [Suspect]
     Active Substance: IRINOTECAN
     Indication: Extraskeletal myxoid chondrosarcoma
     Dosage: UNK
     Route: 065
  3. GEMCITABINE [Suspect]
     Active Substance: GEMCITABINE
     Indication: Extraskeletal myxoid chondrosarcoma
     Dosage: UNK
     Route: 065
  4. GEMCITABINE [Suspect]
     Active Substance: GEMCITABINE
     Dosage: UNK
     Route: 065
  5. DOXORUBICIN [Suspect]
     Active Substance: DOXORUBICIN
     Indication: Extraskeletal myxoid chondrosarcoma
     Dosage: UNK
     Route: 065
  6. DOCETAXEL [Suspect]
     Active Substance: DOCETAXEL
     Indication: Extraskeletal myxoid chondrosarcoma
     Dosage: UNK
     Route: 065
  7. DOCETAXEL [Suspect]
     Active Substance: DOCETAXEL
     Dosage: UNK
     Route: 065
  8. VINCRISTINE [Suspect]
     Active Substance: VINCRISTINE
     Indication: Extraskeletal myxoid chondrosarcoma
     Dosage: UNK
     Route: 065
  9. VINCRISTINE [Suspect]
     Active Substance: VINCRISTINE
     Dosage: 7 CYCLES OF VAI
     Route: 065
  10. CISPLATIN [Suspect]
     Active Substance: CISPLATIN
     Indication: Extraskeletal myxoid chondrosarcoma
     Dosage: UNK
     Route: 065
  11. ACTINOMYCIN D [Suspect]
     Active Substance: DACTINOMYCIN
     Indication: Extraskeletal myxoid chondrosarcoma
     Dosage: UNK
     Route: 065
  12. ACTINOMYCIN D [Suspect]
     Active Substance: DACTINOMYCIN
     Dosage: 7 CYCLES OF VAI
     Route: 065
  13. IFOSFAMIDE [Suspect]
     Active Substance: IFOSFAMIDE
     Indication: Extraskeletal myxoid chondrosarcoma
     Dosage: UNK
     Route: 065
  14. IFOSFAMIDE [Suspect]
     Active Substance: IFOSFAMIDE
     Dosage: 7 CYCLES OF VAI
     Route: 065
  15. CYCLOPHOSPHAMIDE [Suspect]
     Active Substance: CYCLOPHOSPHAMIDE
     Indication: Extraskeletal myxoid chondrosarcoma
     Dosage: UNK
     Route: 065
  16. ETOPOSIDE [Suspect]
     Active Substance: ETOPOSIDE
     Indication: Extraskeletal myxoid chondrosarcoma
     Dosage: UNK
     Route: 065

REACTIONS (2)
  - Disease progression [Fatal]
  - Metastasis [Fatal]

NARRATIVE: CASE EVENT DATE: 20180101
